FAERS Safety Report 18420235 (Version 3)
Quarter: 2020Q4

REPORT INFORMATION
  Report Type: Spontaneous
  Country: US (occurrence: US)
  Receive Date: 20201023
  Receipt Date: 20201216
  Transmission Date: 20210114
  Serious: Yes (Hospitalization)
  Sender: FDA-Public Use
  Company Number: US-VERTEX PHARMACEUTICALS-2020-020567

PATIENT
  Age: 17 Year
  Sex: Male
  Weight: 61 kg

DRUGS (9)
  1. QUERCETIN DIHYDRATE [Concomitant]
     Dosage: 100 %
  2. VITAMIN K [MENADIONE] [Concomitant]
     Active Substance: MENADIONE
  3. BOSWELLIA SERRATA [Concomitant]
  4. VITAMIN A [RETINOL] [Concomitant]
     Active Substance: RETINOL
     Dosage: 10000 INTERNATIONAL UNIT
  5. CURCUMIN [Concomitant]
     Active Substance: CURCUMIN
     Dosage: 100 %
  6. URSODIOL. [Concomitant]
     Active Substance: URSODIOL
     Dosage: 300 MILLIGRAM
  7. VITAMIN E [Concomitant]
     Active Substance: .ALPHA.-TOCOPHEROL
  8. ZENPEP [Concomitant]
     Active Substance: PANCRELIPASE AMYLASE\PANCRELIPASE LIPASE\PANCRELIPASE PROTEASE
     Dosage: 10K-32K-42K
  9. TRIKAFTA [Suspect]
     Active Substance: ELEXACAFTOR\IVACAFTOR\TEZACAFTOR
     Indication: CYSTIC FIBROSIS
     Dosage: 2 ORANGE TABS (100MG ELEXA/ 50MG TEZA/ 75MG IVA) AM ; 1 BLUE TAB (150MG IVA) PM
     Route: 048
     Dates: start: 20200806

REACTIONS (1)
  - Cystic fibrosis related diabetes [Unknown]

NARRATIVE: CASE EVENT DATE: 202010
